FAERS Safety Report 4381620-X (Version None)
Quarter: 2004Q2

REPORT INFORMATION
  Report Type: 
  Country: None (occurrence: None)
  Receive Date: 20040621
  Receipt Date: 20040610
  Transmission Date: 20050107
  Serious: Yes (Other)
  Sender: FDA-Public Use
  Company Number: SE-ROCHE-370767

PATIENT
  Sex: Female

DRUGS (1)
  1. IKTORIVIL [Suspect]
     Indication: DYSTONIA
     Route: 065
     Dates: start: 20040427

REACTIONS (3)
  - DYSPEPSIA [None]
  - GASTROOESOPHAGEAL REFLUX DISEASE [None]
  - STOMACH DISCOMFORT [None]
